FAERS Safety Report 5399551-5 (Version None)
Quarter: 2007Q3

REPORT INFORMATION
  Report Type: 
  Country: None (occurrence: None)
  Receive Date: 20070727
  Receipt Date: 20070716
  Transmission Date: 20080115
  Serious: Yes (Death)
  Sender: FDA-Public Use
  Company Number: US-PFIZER INC-2007058138

PATIENT
  Age: 68 Year
  Sex: Male

DRUGS (5)
  1. NORVASC [Suspect]
     Indication: HYPERTENSION
  2. WARFARIN SODIUM [Suspect]
     Dosage: DAILY DOSE:3.7MG
     Dates: start: 20060912, end: 20070618
  3. TOPROL-XL [Suspect]
  4. ALTACE [Suspect]
  5. OXYCODONE HCL [Suspect]

REACTIONS (3)
  - FALL [None]
  - HAEMORRHAGE INTRACRANIAL [None]
  - SYNCOPE [None]
